FAERS Safety Report 25368526 (Version 1)
Quarter: 2025Q2

REPORT INFORMATION
  Report Type: Spontaneous
  Country: CA (occurrence: CA)
  Receive Date: 20250528
  Receipt Date: 20250528
  Transmission Date: 20250717
  Serious: Yes (Hospitalization, Other)
  Sender: CELLTRION
  Company Number: CA-PFIZER INC-202500105289

PATIENT

DRUGS (9)
  1. INFLECTRA [Suspect]
     Active Substance: INFLIXIMAB-DYYB
     Indication: Crohn^s disease
     Route: 042
     Dates: start: 20250402
  2. AMLODIPINE [Concomitant]
     Active Substance: AMLODIPINE BESYLATE
  3. ATROVENT [Concomitant]
     Active Substance: IPRATROPIUM BROMIDE
  4. COMBIVENT [Concomitant]
     Active Substance: ALBUTEROL SULFATE\IPRATROPIUM BROMIDE
     Route: 065
     Dates: start: 2018
  5. IRON [Concomitant]
     Active Substance: IRON
  6. VITAMINS [Concomitant]
     Active Substance: VITAMINS
  7. RAMIPRIL [Concomitant]
     Active Substance: RAMIPRIL
  8. ROSUVASTATIN [Concomitant]
     Active Substance: ROSUVASTATIN
  9. SYMBICORT [Concomitant]
     Active Substance: BUDESONIDE\FORMOTEROL FUMARATE DIHYDRATE

REACTIONS (1)
  - Cataract [Unknown]
